FAERS Safety Report 8617150-6 (Version None)
Quarter: 2012Q3

REPORT INFORMATION
  Report Type: 
  Country: None (occurrence: None)
  Receive Date: 20120823
  Receipt Date: 20120820
  Transmission Date: 20120928
  Serious: Yes (Other)
  Sender: FDA-Public Use
  Company Number: US-PFIZER INC-2012165555

PATIENT
  Age: 70 Year
  Sex: Female
  Weight: 53.061 kg

DRUGS (8)
  1. CELEXA [Suspect]
     Indication: GENERALISED ANXIETY DISORDER
     Dosage: 20 MG, UNK
     Route: 048
     Dates: start: 20110330, end: 20110511
  2. CELEXA [Suspect]
     Indication: ANXIETY
  3. ZOLOFT [Suspect]
     Dosage: 100 MG, 1X/DAY
     Route: 048
  4. ZOLOFT [Suspect]
     Indication: DEPRESSION
     Dosage: 50 MG, 1X/DAY
     Route: 048
     Dates: start: 20000101, end: 20090101
  5. CELEXA [Suspect]
     Indication: DEPRESSION
  6. XANAX [Concomitant]
     Indication: ANXIETY
     Dosage: 0.25 MG, UNK
     Dates: start: 20110330, end: 20110511
  7. SERTRALINE HYDROCHLORIDE [Suspect]
     Indication: DEPRESSION
     Dosage: UNK
  8. ZOLOFT [Suspect]
     Dosage: 50 MG, 1X/DAY
     Route: 048

REACTIONS (4)
  - DISCOMFORT [None]
  - ANXIETY [None]
  - NERVOUSNESS [None]
  - BODY HEIGHT DECREASED [None]
